FAERS Safety Report 5745681-5 (Version None)
Quarter: 2008Q2

REPORT INFORMATION
  Report Type: 
  Country: None (occurrence: None)
  Receive Date: 20080521
  Receipt Date: 20080428
  Transmission Date: 20081010
  Serious: No
  Sender: FDA-Public Use
  Company Number: US-BOEHRINGER INGELHEIM GMBH, GERMANY-2008-BP-06652BP

PATIENT
  Sex: Female

DRUGS (12)
  1. SPIRIVA [Suspect]
     Indication: CHRONIC OBSTRUCTIVE PULMONARY DISEASE
     Route: 055
     Dates: start: 20080101
  2. ADVAIR DISKUS 100/50 [Suspect]
     Indication: CHRONIC OBSTRUCTIVE PULMONARY DISEASE
     Route: 055
  3. EVOXAC [Concomitant]
     Indication: DRY MOUTH
  4. MEVACOR [Concomitant]
     Indication: HYPERLIPIDAEMIA
  5. NEURONTIN [Concomitant]
     Indication: NEUROPATHY PERIPHERAL
  6. AMBIEN [Concomitant]
     Indication: INSOMNIA
  7. XANAX [Concomitant]
     Indication: ANXIETY
  8. XANAX [Concomitant]
     Indication: PAIN
  9. OXYCODONE HCL [Concomitant]
     Indication: PAIN
     Route: 048
  10. MULTI-VITAMIN [Concomitant]
  11. CALCIUM [Concomitant]
  12. GLUCOSAMINE/CHONDROITIN [Concomitant]

REACTIONS (1)
  - DYSGEUSIA [None]
